FAERS Safety Report 8278955-7 (Version None)
Quarter: 2012Q2

REPORT INFORMATION
  Report Type: 
  Country: None (occurrence: None)
  Receive Date: 20120412
  Receipt Date: 20120106
  Transmission Date: 20120825
  Serious: No
  Sender: FDA-Public Use
  Company Number: US-ASTRAZENECA-2010SE22858

PATIENT
  Age: 32 Year
  Sex: Male
  Weight: 168 kg

DRUGS (5)
  1. NEXIUM [Suspect]
     Indication: GASTROOESOPHAGEAL REFLUX DISEASE
     Route: 048
     Dates: start: 20090401
  2. LORAZEPAM [Concomitant]
  3. NEXIUM [Suspect]
     Route: 048
     Dates: start: 20110901
  4. NEXIUM [Suspect]
     Indication: GASTROINTESTINAL PAIN
     Route: 048
     Dates: start: 20090401
  5. NEXIUM [Suspect]
     Route: 048
     Dates: start: 20110901

REACTIONS (9)
  - DRUG INEFFECTIVE [None]
  - CHEST PAIN [None]
  - OROPHARYNGEAL PAIN [None]
  - ABDOMINAL PAIN UPPER [None]
  - HEPATIC ENZYME INCREASED [None]
  - DYSGEUSIA [None]
  - DRUG DOSE OMISSION [None]
  - BLOOD GASTRIN INCREASED [None]
  - OFF LABEL USE [None]
